FAERS Safety Report 10730199 (Version 1)
Quarter: 2015Q1

REPORT INFORMATION
  Report Type: Spontaneous
  Country: US (occurrence: None)
  Receive Date: 20150120
  Receipt Date: 20150120
  Transmission Date: 20150721
  Serious: Yes (Life-Threatening, Hospitalization)
  Sender: FDA-Public Use
  Company Number: None

PATIENT
  Age: 63 Year
  Sex: Male
  Weight: 124.74 kg

DRUGS (2)
  1. TAMSULOSIN HCL [Suspect]
     Active Substance: TAMSULOSIN
     Indication: PROSTATOMEGALY
     Dosage: 1 TAB ONCE DAILY TAKEN BY MOUTH
     Route: 048
     Dates: start: 20150117, end: 20150117
  2. TAMSULOSIN HCL [Suspect]
     Active Substance: TAMSULOSIN
     Dosage: 1 TAB ONCE DAILY TAKEN BY MOUTH
     Route: 048
     Dates: start: 20150117, end: 20150117

REACTIONS (4)
  - Feeling cold [None]
  - Presyncope [None]
  - Hyperhidrosis [None]
  - Urinary incontinence [None]

NARRATIVE: CASE EVENT DATE: 20150117
